FAERS Safety Report 6315470-1 (Version None)
Quarter: 2009Q3

REPORT INFORMATION
  Report Type: 
  Country: None (occurrence: None)
  Receive Date: 20090819
  Receipt Date: 20090805
  Transmission Date: 20100115
  Serious: Yes (Other)
  Sender: FDA-Public Use
  Company Number: SE-MYLANLABS-2009S1013935

PATIENT
  Age: 25 Year
  Sex: Female

DRUGS (3)
  1. OMEPRAZOLE [Suspect]
     Indication: DYSPHONIA
     Dates: start: 20090728, end: 20090731
  2. CITALOPRAM HYDROBROMIDE [Interacting]
     Indication: DEPRESSION
  3. CERAZETTE [Concomitant]
     Indication: CONTRACEPTION

REACTIONS (5)
  - ANXIETY [None]
  - CRYING [None]
  - DEPRESSION [None]
  - DRUG INTERACTION [None]
  - HYPERHIDROSIS [None]
